FAERS Safety Report 9186517 (Version 2)
Quarter: 2013Q1

REPORT INFORMATION
  Report Type: Report from Study
  Country: US (occurrence: US)
  Receive Date: 20130325
  Receipt Date: 20130326
  Transmission Date: 20140127
  Serious: Yes (Other)
  Sender: FDA-Public Use
  Company Number: US-UCBSA-067719

PATIENT
  Age: 38 Year
  Sex: Female
  Weight: 56 kg

DRUGS (8)
  1. CIMZIA [Suspect]
     Indication: CROHN^S DISEASE
     Dosage: 400 MG
     Dates: start: 20090914
  2. MESALAMINE [Concomitant]
     Indication: CROHN^S DISEASE
     Dates: start: 2006
  3. FOLIC ACID/PRENATAL VITAMINS [Concomitant]
     Indication: PROPHYLAXIS
     Route: 048
  4. ASACOL [Concomitant]
  5. PURINETHOL [Concomitant]
  6. MULTIVITAMIN [Concomitant]
     Indication: PROPHYLAXIS
     Route: 048
  7. ASTELIN [Concomitant]
     Indication: HYPERSENSITIVITY
     Dosage: DOSE: 1-2 SPRAYS (137 MCG/INH), PRN
     Route: 055
     Dates: start: 20100104
  8. AMBIEN [Concomitant]
     Dosage: DOSE: 5-10 MG, QHS PRN
     Route: 048
     Dates: start: 20100923

REACTIONS (2)
  - Abortion spontaneous [Recovered/Resolved]
  - Pregnancy [Recovered/Resolved]
